FAERS Safety Report 9283206 (Version 1)
Quarter: 2013Q2

REPORT INFORMATION
  Report Type: Spontaneous
  Country: US (occurrence: US)
  Receive Date: 20130510
  Receipt Date: 20130510
  Transmission Date: 20140414
  Serious: No
  Sender: FDA-Public Use
  Company Number: US-GLAXOSMITHKLINE-A0988366A

PATIENT
  Age: 50 Year
  Sex: Female
  Weight: 60.5 kg

DRUGS (6)
  1. TYKERB [Suspect]
     Indication: PRODUCT USED FOR UNKNOWN INDICATION
     Dosage: 1250MG PER DAY
     Route: 048
  2. ANASTROZOLE [Concomitant]
     Dosage: 1MG UNKNOWN
     Route: 048
  3. ZOMETA [Concomitant]
  4. MULTIVITAMIN [Concomitant]
     Dosage: 1TAB UNKNOWN
     Route: 048
  5. VITAMIN C [Concomitant]
     Dosage: 500MG UNKNOWN
     Route: 048
  6. HERCEPTIN [Concomitant]
     Dosage: 440MG UNKNOWN

REACTIONS (3)
  - Diarrhoea [Unknown]
  - Lymphoedema [Unknown]
  - Local swelling [Unknown]
